FAERS Safety Report 5523344-9 (Version None)
Quarter: 2007Q4

REPORT INFORMATION
  Report Type: 
  Country: None (occurrence: None)
  Receive Date: 20071121
  Receipt Date: 20071114
  Transmission Date: 20080405
  Serious: Yes (Life-Threatening, Hospitalization, Congenital Anomaly, Other)
  Sender: FDA-Public Use
  Company Number: B0454969A

PATIENT
  Age: 7 Month
  Sex: Female
  Weight: 5 kg

DRUGS (4)
  1. COMBIVIR [Suspect]
     Indication: HIV INFECTION
     Dates: start: 20050901
  2. VIRAMUNE [Suspect]
     Indication: RETROVIRAL INFECTION
     Dosage: 400MG PER DAY
     Dates: start: 20050922, end: 20060509
  3. ZIDOVUDINE [Suspect]
     Dosage: 4MG TWICE PER DAY
     Dates: start: 20060701, end: 20060801
  4. FERROUS SULFATE TAB [Suspect]

REACTIONS (14)
  - ACIDOSIS [None]
  - AMMONIA INCREASED [None]
  - DEPRESSED LEVEL OF CONSCIOUSNESS [None]
  - DRUG EXPOSURE DURING PREGNANCY [None]
  - EATING DISORDER [None]
  - FOETAL GROWTH RETARDATION [None]
  - GRUNTING [None]
  - LETHARGY [None]
  - METABOLIC ACIDOSIS [None]
  - METHYLMALONIC ACIDURIA [None]
  - PALLOR [None]
  - RHINITIS [None]
  - UNDERWEIGHT [None]
  - VITAMIN B12 DEFICIENCY [None]
